FAERS Safety Report 24308360 (Version 1)
Quarter: 2024Q3

REPORT INFORMATION
  Report Type: Spontaneous
  Country: US (occurrence: US)
  Receive Date: 20240911
  Receipt Date: 20240911
  Transmission Date: 20241017
  Serious: Yes (Other)
  Sender: BAYER
  Company Number: US-BAYER-2024A129556

PATIENT
  Age: 64 Year
  Sex: Female

DRUGS (1)
  1. ALEVE [Suspect]
     Active Substance: NAPROXEN SODIUM
     Indication: Pain
     Dosage: 1 DF; WITH A GLASS OF WATER
     Route: 048
     Dates: start: 20240908, end: 20240908

REACTIONS (2)
  - Hallucination [Recovered/Resolved]
  - Product container seal issue [None]

NARRATIVE: CASE EVENT DATE: 20240908
